FAERS Safety Report 4426437-2 (Version None)
Quarter: 2004Q3

REPORT INFORMATION
  Report Type: 
  Country: None (occurrence: None)
  Receive Date: 20040811
  Receipt Date: 20040727
  Transmission Date: 20050211
  Serious: Yes (Hospitalization)
  Sender: FDA-Public Use
  Company Number: DE-SHR-04-024108

PATIENT
  Age: 51 Year
  Sex: Male
  Weight: 80 kg

DRUGS (12)
  1. FLUDARA [Suspect]
     Indication: B-CELL LYMPHOMA
     Dosage: 30 MG/M2, INTRAVENOUS
     Route: 042
     Dates: start: 20040408, end: 20040409
  2. CYCLOPHOSPHAMIDE [Suspect]
     Indication: B-CELL LYMPHOMA
     Dosage: 300 MG/M2, INTRAVENOUS
     Route: 042
     Dates: start: 20040408, end: 20040409
  3. RITUXIMAB (RITUXIMAB) [Suspect]
     Dates: start: 20040407, end: 20040407
  4. CLEMASTINE FUMARATE [Concomitant]
  5. TAZOBAC (PIPERACILLIN SODIUM, TAZOBACTAM SODIM) [Concomitant]
  6. FUROSEMIDE [Concomitant]
  7. RINGER  (CALCIUM CHLORIDE DIHYDRATE) [Concomitant]
  8. SEVREDOL (MORPHINE SULFATE) [Concomitant]
  9. ZYLORIC [Concomitant]
  10. NOVALGIN (METAMIZOLE SODIUM ONOHYDRATE) [Concomitant]
  11. PANTOZOL (PANTOPRAZOLE SODIUM) [Concomitant]
  12. KEVATRIL (GRANISETRON HYDROCHLORIDE) [Concomitant]

REACTIONS (1)
  - RENAL FAILURE ACUTE [None]
